FAERS Safety Report 11966656 (Version 1)
Quarter: 2016Q1

REPORT INFORMATION
  Report Type: Spontaneous
  Country: US (occurrence: US)
  Receive Date: 20160127
  Receipt Date: 20160127
  Transmission Date: 20160526
  Serious: No
  Sender: FDA-Public Use
  Company Number: US-AMGEN-USASP2016007970

PATIENT
  Age: 65 Year
  Sex: Female

DRUGS (4)
  1. FOLIC ACID. [Concomitant]
     Active Substance: FOLIC ACID
     Dosage: UNK
     Route: 065
  2. PREDNISONE                         /00044702/ [Concomitant]
     Active Substance: PREDNISONE
     Dosage: UNK
     Route: 065
  3. ENBREL [Suspect]
     Active Substance: ETANERCEPT
     Indication: RHEUMATOID ARTHRITIS
     Dosage: 50 MG, QWK
     Route: 058
     Dates: start: 201511, end: 201601
  4. PRILOSEC [Concomitant]
     Active Substance: OMEPRAZOLE MAGNESIUM
     Dosage: UNK
     Route: 065

REACTIONS (6)
  - Rash macular [Recovered/Resolved]
  - Injection site reaction [Recovered/Resolved]
  - Injection site swelling [Recovered/Resolved]
  - Rash [Recovered/Resolved]
  - Injection site erythema [Recovered/Resolved]
  - Injection site discolouration [Recovered/Resolved]
